FAERS Safety Report 11111871 (Version 2)
Quarter: 2015Q3

REPORT INFORMATION
  Report Type: Spontaneous
  Country: DE (occurrence: DE)
  Receive Date: 20150514
  Receipt Date: 20150812
  Transmission Date: 20151125
  Serious: Yes (Other)
  Sender: FDA-Public Use
  Company Number: DE-AMGEN-DEUSP2015044521

PATIENT
  Age: 80 Year
  Sex: Male

DRUGS (4)
  1. PREDNISOLUT                        /00016203/ [Concomitant]
     Indication: PREMEDICATION
     Dosage: 4 MG, UNK
     Route: 042
     Dates: start: 20150414
  2. VECTIBIX [Suspect]
     Active Substance: PANITUMUMAB
     Indication: COLON CANCER
     Dosage: 380 MG, UNK
     Route: 042
     Dates: start: 20150414
  3. ELOXATIN [Concomitant]
     Active Substance: OXALIPLATIN
     Indication: COLON CANCER
     Dosage: 137.5 MG, UNK
     Route: 042
     Dates: start: 20150414
  4. FENISTIL [Concomitant]
     Active Substance: DIMETHINDENE
     Indication: PREMEDICATION
     Dosage: 4 MG, UNK
     Route: 042
     Dates: start: 20150414

REACTIONS (6)
  - Oropharyngeal discomfort [Unknown]
  - Flushing [Unknown]
  - Cyanosis [Recovered/Resolved]
  - Rash pustular [Recovered/Resolved]
  - Respiratory distress [Recovered/Resolved]
  - Rash macular [Recovered/Resolved]

NARRATIVE: CASE EVENT DATE: 20150414
